FAERS Safety Report 6567654-5 (Version None)
Quarter: 2010Q1

REPORT INFORMATION
  Report Type: 
  Country: None (occurrence: None)
  Receive Date: 20100203
  Receipt Date: 20100125
  Transmission Date: 20100710
  Serious: Yes (Other)
  Sender: FDA-Public Use
  Company Number: US-BIOGENIDEC-2008BI003165

PATIENT
  Age: 48 Year
  Sex: Female

DRUGS (1)
  1. TYSABRI [Suspect]
     Indication: MULTIPLE SCLEROSIS
     Route: 042
     Dates: start: 20071009, end: 20080212

REACTIONS (11)
  - ASTHENIA [None]
  - CHILLS [None]
  - DYSPNOEA [None]
  - FEAR [None]
  - FEELING OF BODY TEMPERATURE CHANGE [None]
  - INFLUENZA LIKE ILLNESS [None]
  - MUSCULAR WEAKNESS [None]
  - PAIN IN EXTREMITY [None]
  - PLASMAPHERESIS [None]
  - URINARY TRACT INFECTION [None]
  - VOMITING [None]
